FAERS Safety Report 9577829 (Version 2)
Quarter: 2013Q4

REPORT INFORMATION
  Report Type: Spontaneous
  Country: US (occurrence: US)
  Receive Date: 20131001
  Receipt Date: 20131001
  Transmission Date: 20140711
  Serious: No
  Sender: FDA-Public Use
  Company Number: US-AMGEN-USASP2013002759

PATIENT
  Sex: Female
  Weight: 77.1 kg

DRUGS (14)
  1. ENBREL [Suspect]
     Indication: RHEUMATOID ARTHRITIS
     Dosage: 50 MG, QWK
     Route: 058
  2. METHOTREXATE [Concomitant]
     Dosage: 2.5 MG, UNK
  3. LOVASTATIN [Concomitant]
     Dosage: 40 MG, UNK
  4. OMEPRAZOLE [Concomitant]
     Dosage: 40 MG, UNK
  5. LAMICTAL [Concomitant]
     Dosage: 100 MG, UNK
  6. VITAMIN E                          /00110501/ [Concomitant]
     Dosage: 200 UNIT, UNK
  7. VERAPAMIL [Concomitant]
     Dosage: 200 MG, UNK
  8. CALCIUM [Concomitant]
     Dosage: 500 MG, UNK
  9. FOLIC ACID [Concomitant]
     Dosage: 5 MG, UNK
  10. OMEGA 3                            /01334101/ [Concomitant]
     Dosage: 1000 MG, UNK
  11. MENEST                             /00073001/ [Concomitant]
     Dosage: 0.625 MG, UNK
  12. GLUCOSAMINE [Concomitant]
     Dosage: 500 MG, UNK
  13. VITAMIN D                          /00107901/ [Concomitant]
     Dosage: 400 UNIT, UNK
  14. HUMIRA [Concomitant]
     Dosage: UNK

REACTIONS (1)
  - Drug ineffective [Not Recovered/Not Resolved]
